FAERS Safety Report 8531488-2 (Version None)
Quarter: 2012Q3

REPORT INFORMATION
  Report Type: 
  Country: None (occurrence: None)
  Receive Date: 20120710
  Receipt Date: 20120629
  Transmission Date: 20120928
  Serious: Yes (Death, Hospitalization, Other)
  Sender: FDA-Public Use
  Company Number: VAL_00781_2012

PATIENT
  Age: 86 Year
  Sex: Female

DRUGS (2)
  1. HYDRALAZINE HCL [Concomitant]
  2. CARBAMAZEPINE [Suspect]
     Indication: PRODUCT USED FOR UNKNOWN INDICATION
     Dosage: (100 MG QD)

REACTIONS (15)
  - INSOMNIA [None]
  - ANTINEUTROPHIL CYTOPLASMIC ANTIBODY POSITIVE [None]
  - ORAL MUCOSA EROSION [None]
  - ANTINUCLEAR ANTIBODY POSITIVE [None]
  - ACUTE PHASE REACTION [None]
  - ACUTE FEBRILE NEUTROPHILIC DERMATOSIS [None]
  - RENAL FAILURE ACUTE [None]
  - PROTEINURIA [None]
  - ANXIETY [None]
  - PYREXIA [None]
  - SKIN LESION [None]
  - PERIORBITAL OEDEMA [None]
  - HAEMATURIA [None]
  - FATIGUE [None]
  - CONJUNCTIVITIS [None]
